FAERS Safety Report 7221115-9 (Version None)
Quarter: 2011Q1

REPORT INFORMATION
  Report Type: 
  Country: None (occurrence: None)
  Receive Date: 20110112
  Receipt Date: 20110106
  Transmission Date: 20110831
  Serious: No
  Sender: FDA-Public Use
  Company Number: US-PFIZER INC-2011004773

PATIENT
  Age: 59 Year
  Sex: Female

DRUGS (6)
  1. FOLIC ACID [Concomitant]
  2. LIPITOR [Suspect]
  3. DORZOLAMIDE [Concomitant]
  4. PREDNISONE [Concomitant]
  5. RANITIDINE [Concomitant]
  6. AMLODIPINE BESYLATE AND BENAZEPRIL HCL [Concomitant]

REACTIONS (1)
  - MUSCLE SPASMS [None]
